FAERS Safety Report 9097364 (Version 1)
Quarter: 2013Q1

REPORT INFORMATION
  Report Type: Spontaneous
  Country: US (occurrence: US)
  Receive Date: 20130212
  Receipt Date: 20130212
  Transmission Date: 20140127
  Serious: Yes (Other)
  Sender: FDA-Public Use
  Company Number: US-PFIZER INC-2013051472

PATIENT
  Age: 61 Year
  Sex: Female
  Weight: 73 kg

DRUGS (1)
  1. ARTHROTEC [Suspect]
     Indication: PSORIATIC ARTHROPATHY
     Dosage: 75 MG/ 200 MCG, 2X/DAY
     Route: 048

REACTIONS (4)
  - Arthropathy [Unknown]
  - Arthropathy [Unknown]
  - Rotator cuff syndrome [Unknown]
  - Psoriasis [Unknown]
